FAERS Safety Report 4395181-2 (Version None)
Quarter: 2004Q3

REPORT INFORMATION
  Report Type: 
  Country: None (occurrence: None)
  Receive Date: 20040706
  Receipt Date: 20040624
  Transmission Date: 20050211
  Serious: Yes (Hospitalization)
  Sender: FDA-Public Use
  Company Number: K200400591

PATIENT
  Age: 73 Year
  Sex: Female

DRUGS (4)
  1. ALTACE [Suspect]
     Indication: ESSENTIAL HYPERTENSION
     Dosage: 10 MG, QD, ORAL
     Route: 048
     Dates: start: 20040408, end: 20040408
  2. NORTEM (TEMAZEPAM) [Concomitant]
  3. NU-SEALS (ACETYLSALICYLIC ACID) [Concomitant]
  4. MICARDIS HCT [Concomitant]

REACTIONS (5)
  - ASTHENIA [None]
  - CIRCULATORY COLLAPSE [None]
  - DIZZINESS [None]
  - DRY THROAT [None]
  - PALPITATIONS [None]
